FAERS Safety Report 11224518 (Version 2)
Quarter: 2015Q3

REPORT INFORMATION
  Report Type: Report from Study
  Country: US (occurrence: US)
  Receive Date: 20150629
  Receipt Date: 20150724
  Transmission Date: 20151125
  Serious: Yes (Hospitalization)
  Sender: FDA-Public Use
  Company Number: US-BIOGENIDEC-2015BI087473

PATIENT
  Age: 49 Year
  Sex: Female

DRUGS (1)
  1. PLEGRIDY [Suspect]
     Active Substance: PEGINTERFERON BETA-1A
     Indication: MULTIPLE SCLEROSIS
     Route: 058
     Dates: start: 20150227

REACTIONS (9)
  - Asthma [Unknown]
  - Hypertension [Unknown]
  - Migraine [Not Recovered/Not Resolved]
  - Speech disorder [Recovered/Resolved]
  - VIIth nerve paralysis [Recovered/Resolved]
  - Multiple sclerosis [Unknown]
  - Optic neuritis [Recovered/Resolved]
  - Anxiety [Unknown]
  - Major depression [Unknown]

NARRATIVE: CASE EVENT DATE: 20150612
